FAERS Safety Report 21360120 (Version 8)
Quarter: 2023Q1

REPORT INFORMATION
  Report Type: Report from Study
  Country: US (occurrence: US)
  Receive Date: 20220921
  Receipt Date: 20230327
  Transmission Date: 20230418
  Serious: Yes (Hospitalization, Other)
  Sender: FDA-Public Use
  Company Number: US-002147023-NVSC2022US212549

PATIENT
  Sex: Female

DRUGS (1)
  1. TABRECTA [Suspect]
     Active Substance: CAPMATINIB
     Indication: Product used for unknown indication
     Dosage: UNK
     Route: 065
     Dates: start: 20220915

REACTIONS (14)
  - Mobility decreased [Unknown]
  - Heart rate increased [Unknown]
  - Syncope [Unknown]
  - Loss of consciousness [Unknown]
  - Insomnia [Unknown]
  - Concomitant disease aggravated [Unknown]
  - Lymphoedema [Unknown]
  - Muscular weakness [Unknown]
  - Fatigue [Not Recovered/Not Resolved]
  - Vocal cord paralysis [Unknown]
  - Neck pain [Unknown]
  - Arthralgia [Unknown]
  - Exposure to SARS-CoV-2 [Unknown]
  - Peripheral swelling [Recovering/Resolving]
